FAERS Safety Report 8615038-8 (Version None)
Quarter: 2012Q3

REPORT INFORMATION
  Report Type: 
  Country: None (occurrence: None)
  Receive Date: 20120823
  Receipt Date: 20120816
  Transmission Date: 20120928
  Serious: Yes (Other)
  Sender: FDA-Public Use
  Company Number: US-PFIZER INC-2012201253

PATIENT
  Age: 88 Year
  Sex: Female
  Weight: 50.79 kg

DRUGS (1)
  1. CELEBREX [Suspect]
     Indication: ARTHRITIS
     Dosage: 200 MG, 1X/DAY (DAILY)

REACTIONS (7)
  - GLAUCOMA [None]
  - SKIN DISCOLOURATION [None]
  - ARTHRITIS [None]
  - HEARING IMPAIRED [None]
  - DRUG INEFFECTIVE [None]
  - CONTUSION [None]
  - MYOCARDIAL INFARCTION [None]
